FAERS Safety Report 7503610-8 (Version None)
Quarter: 2011Q2

REPORT INFORMATION
  Report Type: 
  Country: None (occurrence: None)
  Receive Date: 20110525
  Receipt Date: 20110516
  Transmission Date: 20111010
  Serious: Yes (Death)
  Sender: FDA-Public Use
  Company Number: IE-MEDIMMUNE-MEDI-0012174

PATIENT
  Sex: Female
  Weight: 8.16 kg

DRUGS (7)
  1. ANTACIDS [Concomitant]
  2. AUGMENTIN [Concomitant]
  3. DUPHALAX [Concomitant]
  4. RANITIDINE HYDROCHLORIDE [Concomitant]
  5. MORPHINE [Concomitant]
  6. SYNAGIS [Suspect]
     Indication: SPINAL MUSCULAR ATROPHY
     Route: 030
     Dates: start: 20101115, end: 20101214
  7. LACTULOSE [Concomitant]

REACTIONS (1)
  - ASTHENIA [None]
